FAERS Safety Report 12432541 (Version 2)
Quarter: 2016Q2

REPORT INFORMATION
  Report Type: Report from Study
  Country: HU (occurrence: HU)
  Receive Date: 20160603
  Receipt Date: 20160607
  Transmission Date: 20160815
  Serious: Yes (Hospitalization, Other)
  Sender: FDA-Public Use
  Company Number: PHHO2016HU007885

PATIENT
  Sex: Male
  Weight: 102 kg

DRUGS (6)
  1. SPIRIVA [Concomitant]
     Active Substance: TIOTROPIUM BROMIDE MONOHYDRATE
     Indication: CHRONIC OBSTRUCTIVE PULMONARY DISEASE
     Dosage: 18 UG, QD
     Route: 055
  2. FORMOTEROL [Concomitant]
     Active Substance: FORMOTEROL
     Indication: CHRONIC OBSTRUCTIVE PULMONARY DISEASE
     Dosage: 9 UG, BID
     Route: 055
  3. RAMACE [Concomitant]
     Indication: HYPERTENSION
     Dosage: UNK
     Route: 048
     Dates: start: 20151216
  4. NVA237 [Suspect]
     Active Substance: GLYCOPYRROLATE
     Indication: CHRONIC OBSTRUCTIVE PULMONARY DISEASE
     Dosage: 44 UG, QD
     Route: 055
     Dates: start: 20151216
  5. BISOBLOCK [Concomitant]
     Active Substance: BISOPROLOL FUMARATE
     Indication: HYPERTENSION
     Dosage: UNK
     Route: 048
     Dates: start: 20151216
  6. MESULID [Concomitant]
     Active Substance: NIMESULIDE
     Indication: SPINAL OSTEOARTHRITIS
     Dosage: UNK
     Route: 048
     Dates: start: 2013

REACTIONS (2)
  - Pneumonia [Not Recovered/Not Resolved]
  - Chronic obstructive pulmonary disease [Unknown]

NARRATIVE: CASE EVENT DATE: 20160518
